FAERS Safety Report 5162906-8 (Version None)
Quarter: 2006Q4

REPORT INFORMATION
  Report Type: 
  Country: None (occurrence: None)
  Receive Date: 20061201
  Receipt Date: 20061109
  Transmission Date: 20070319
  Serious: Yes (Hospitalization)
  Sender: FDA-Public Use
  Company Number: JP-ROCHE-470604

PATIENT
  Age: 59 Year
  Sex: Male

DRUGS (5)
  1. PANALDINE [Suspect]
     Indication: CEREBRAL INFARCTION
     Route: 048
     Dates: start: 20060331, end: 20061027
  2. LIPITOR [Suspect]
     Route: 048
     Dates: start: 20060901, end: 20061027
  3. CALBLOCK [Concomitant]
     Indication: HYPERTENSION
     Route: 048
     Dates: start: 20060315
  4. OLMETEC [Concomitant]
     Indication: HYPERTENSION
     Route: 048
     Dates: start: 20050315
  5. NOVORAPID [Concomitant]
     Indication: DIABETES MELLITUS
     Dosage: 16 UNITS AM AND 6 UNITS PM.
     Route: 058
     Dates: start: 20060315

REACTIONS (5)
  - ALVEOLITIS ALLERGIC [None]
  - COUGH [None]
  - DYSPNOEA [None]
  - INTERSTITIAL LUNG DISEASE [None]
  - LYMPHOCYTE STIMULATION TEST POSITIVE [None]
